FAERS Safety Report 15888980 (Version 1)
Quarter: 2019Q1

REPORT INFORMATION
  Report Type: Spontaneous
  Country: US (occurrence: US)
  Receive Date: 20190130
  Receipt Date: 20190130
  Transmission Date: 20190417
  Serious: No
  Sender: FDA-Public Use
  Company Number: US-ASTRAZENECA-2019SE09030

PATIENT
  Age: 19359 Day
  Sex: Male
  Weight: 59 kg

DRUGS (5)
  1. SYMBICORT [Suspect]
     Active Substance: BUDESONIDE\FORMOTEROL FUMARATE DIHYDRATE
     Indication: ASTHMA
     Dosage: 160/4.5MCG, 2 PUFFS TWICE A DAY
     Route: 055
  2. LATANOPROST. [Concomitant]
     Active Substance: LATANOPROST
     Indication: CORNEAL IMPLANT
     Route: 047
     Dates: start: 2008
  3. FLUOROMETHOLONE. [Concomitant]
     Active Substance: FLUOROMETHOLONE
     Indication: CORNEAL IMPLANT
     Route: 047
     Dates: start: 2008
  4. BUSPIRONE [Concomitant]
     Active Substance: BUSPIRONE HYDROCHLORIDE
     Indication: ANXIETY DISORDER
     Route: 048
     Dates: start: 20190114
  5. COMBIGAN [Concomitant]
     Active Substance: BRIMONIDINE TARTRATE\TIMOLOL MALEATE
     Indication: CORNEAL IMPLANT
     Route: 047
     Dates: start: 2008

REACTIONS (10)
  - Malaise [Unknown]
  - Palpitations [Unknown]
  - Anxiety [Unknown]
  - Fatigue [Unknown]
  - Tension [Unknown]
  - Intentional product misuse [Not Recovered/Not Resolved]
  - Therapy cessation [Unknown]
  - Panic attack [Unknown]
  - Tremor [Unknown]
  - Product dose omission [Unknown]

NARRATIVE: CASE EVENT DATE: 20180107
